FAERS Safety Report 6367978-0 (Version None)
Quarter: 2009Q3

REPORT INFORMATION
  Report Type: 
  Country: None (occurrence: None)
  Receive Date: 20090917
  Receipt Date: 20090808
  Transmission Date: 20100115
  Serious: Yes (Hospitalization)
  Sender: FDA-Public Use
  Company Number: 20090808CINRY1075

PATIENT
  Sex: Female

DRUGS (1)
  1. CINRYZE [Suspect]
     Indication: HEREDITARY ANGIOEDEMA
     Dosage: INTRAVENOUS
     Route: 042

REACTIONS (3)
  - CATHETER THROMBOSIS [None]
  - COMPARTMENT SYNDROME [None]
  - HEREDITARY ANGIOEDEMA [None]
